FAERS Safety Report 10010257 (Version 1)
Quarter: 2014Q1

REPORT INFORMATION
  Report Type: Spontaneous
  Country: DE (occurrence: DE)
  Receive Date: 20140313
  Receipt Date: 20140313
  Transmission Date: 20141002
  Serious: Yes (Other)
  Sender: FDA-Public Use
  Company Number: DE-BRISTOL-MYERS SQUIBB COMPANY-20385977

PATIENT
  Sex: 0

DRUGS (1)
  1. SUSTIVA TABS 600 MG [Suspect]
     Indication: HIV INFECTION

REACTIONS (1)
  - Dysphagia [Unknown]
